FAERS Safety Report 7739231-1 (Version None)
Quarter: 2011Q3

REPORT INFORMATION
  Report Type: 
  Country: None (occurrence: None)
  Receive Date: 20110909
  Receipt Date: 20110902
  Transmission Date: 20111222
  Serious: Yes (Death, Congenital Anomaly)
  Sender: FDA-Public Use
  Company Number: PR-PFIZER INC-2005122253

PATIENT
  Sex: Female
  Weight: 1.81 kg

DRUGS (2)
  1. COMBIVIR [Suspect]
     Indication: HIV TEST POSITIVE
     Route: 048
     Dates: start: 20041115
  2. VIRACEPT [Suspect]
     Route: 048
     Dates: start: 20041115

REACTIONS (2)
  - MYOTONIC DYSTROPHY [None]
  - MICROGNATHIA [None]
